FAERS Safety Report 10855695 (Version 5)
Quarter: 2015Q3

REPORT INFORMATION
  Report Type: Spontaneous
  Country: US (occurrence: US)
  Receive Date: 20150223
  Receipt Date: 20150902
  Transmission Date: 20151125
  Serious: Yes (Hospitalization, Other)
  Sender: FDA-Public Use
  Company Number: US-PFIZER INC-2015063332

PATIENT
  Age: 75 Year
  Sex: Female
  Weight: 58 kg

DRUGS (8)
  1. LORAZEPAM. [Concomitant]
     Active Substance: LORAZEPAM
     Indication: NERVOUSNESS
     Dosage: 0.5 MG, 3X/DAY
     Route: 048
  2. TRIAMTERENE AND HYDROCHLOROTHIZIDE [Concomitant]
     Active Substance: HYDROCHLOROTHIAZIDE\TRIAMTERENE
     Indication: FLUID RETENTION
     Dosage: 0.5 DF, DAILY
     Route: 048
  3. OMEPRAZOLE. [Concomitant]
     Active Substance: OMEPRAZOLE
     Indication: GASTRIC DISORDER
     Dosage: 20 MG, 2X/DAY
     Route: 048
  4. BABY ASPIRIN [Concomitant]
     Active Substance: ASPIRIN
     Indication: CARDIAC DISORDER
     Dosage: 81 MG, 1X/DAY
     Route: 048
  5. LOSARTAN. [Concomitant]
     Active Substance: LOSARTAN
     Indication: BLOOD PRESSURE ABNORMAL
     Dosage: 50 MG, 1X/DAY
     Route: 048
  6. ZOLOFT [Suspect]
     Active Substance: SERTRALINE HYDROCHLORIDE
     Dosage: 50 MG, DAILY (IN 1998 OR 1999)
     Route: 048
  7. NITROSTAT [Concomitant]
     Active Substance: NITROGLYCERIN
     Indication: CARDIAC DISORDER
     Dosage: UNK, AS NEEDED
     Route: 048
  8. ZOLOFT [Suspect]
     Active Substance: SERTRALINE HYDROCHLORIDE
     Dosage: 50 MG, DAILY
     Route: 048
     Dates: start: 2013

REACTIONS (6)
  - Breast cancer female [Recovered/Resolved]
  - Breast cancer female [Not Recovered/Not Resolved]
  - Cataract [Recovered/Resolved]
  - Cataract [Not Recovered/Not Resolved]
  - Tooth loss [Unknown]
  - Second primary malignancy [Not Recovered/Not Resolved]

NARRATIVE: CASE EVENT DATE: 2012
